FAERS Safety Report 6090697-5 (Version None)
Quarter: 2009Q1

REPORT INFORMATION
  Report Type: 
  Country: None (occurrence: None)
  Receive Date: 20090224
  Receipt Date: 20090123
  Transmission Date: 20090719
  Serious: No
  Sender: FDA-Public Use
  Company Number: US-ABBOTT-09P-163-0499905-00

PATIENT
  Sex: Female
  Weight: 80.812 kg

DRUGS (12)
  1. SIMCOR [Suspect]
     Indication: BLOOD TRIGLYCERIDES INCREASED
     Dosage: 500/20 MG
     Route: 048
     Dates: start: 20081226
  2. SIMCOR [Suspect]
     Indication: BLOOD CHOLESTEROL INCREASED
  3. LOVAZA [Concomitant]
     Indication: BLOOD CHOLESTEROL INCREASED
     Dosage: UNKNOWN
  4. EXFORGE [Concomitant]
     Indication: DRUG USE FOR UNKNOWN INDICATION
     Dosage: 10/320 MG
     Route: 048
  5. INDAPAMIDE [Concomitant]
     Indication: JOINT SWELLING
     Dosage: 2.5 MG
     Route: 048
  6. ATENOLOL [Concomitant]
     Indication: HYPERTENSION
     Route: 048
  7. FERGON [Concomitant]
     Indication: MINERAL SUPPLEMENTATION
     Route: 048
  8. GLYBURIDE [Concomitant]
     Indication: TYPE 2 DIABETES MELLITUS
     Route: 048
  9. INDOMETHESONE [Concomitant]
     Indication: OSTEOARTHRITIS
     Route: 048
  10. MAG OX [Concomitant]
     Indication: HEART RATE INCREASED
     Route: 048
  11. ASPIRIN [Concomitant]
     Indication: CARDIOVASCULAR EVENT PROPHYLAXIS
     Route: 048
  12. FOLIC ACID [Concomitant]
     Indication: CARDIOVASCULAR EVENT PROPHYLAXIS
     Route: 048

REACTIONS (2)
  - FLUSHING [None]
  - PRURITUS [None]
